FAERS Safety Report 10151186 (Version 1)
Quarter: 2014Q2

REPORT INFORMATION
  Report Type: Spontaneous
  Country: US (occurrence: US)
  Receive Date: 20140502
  Receipt Date: 20140502
  Transmission Date: 20141212
  Serious: No
  Sender: FDA-Public Use
  Company Number: US-ASTRAZENECA-2014SE11274

PATIENT
  Age: 19 Year
  Sex: Male

DRUGS (4)
  1. PRILOSEC OTC [Suspect]
     Indication: GASTRITIS
     Route: 048
     Dates: start: 20140113
  2. PRILOSEC OTC [Suspect]
     Indication: NAUSEA
     Route: 048
     Dates: start: 20140113
  3. PRILOSEC OTC [Suspect]
     Indication: ABDOMINAL PAIN
     Route: 048
     Dates: start: 20140113
  4. PRILOSEC OTC [Suspect]
     Indication: GASTROOESOPHAGEAL REFLUX DISEASE
     Route: 048
     Dates: start: 20140113

REACTIONS (2)
  - Abdominal pain upper [Not Recovered/Not Resolved]
  - Drug ineffective [Unknown]
